FAERS Safety Report 5056667-0 (Version None)
Quarter: 2006Q2

REPORT INFORMATION
  Report Type: 
  Country: None (occurrence: None)
  Receive Date: 20060616
  Receipt Date: 20060227
  Transmission Date: 20061013
  Serious: No
  Sender: FDA-Public Use
  Company Number: 222569

PATIENT
  Age: 43 Year
  Sex: Female
  Weight: 62.1 kg

DRUGS (5)
  1. AVASTIN [Suspect]
     Indication: LUNG NEOPLASM MALIGNANT
     Dosage: 300 MG, Q2W, INTRAVENOUS
     Route: 042
     Dates: start: 20060109
  2. CARBOPLATIN [Concomitant]
  3. TAXOTERE [Concomitant]
  4. KYTRIN (GRANISETRON HYDROCHLORIDE) [Concomitant]
  5. DECADRON [Concomitant]

REACTIONS (2)
  - MENORRHAGIA [None]
  - UTERINE HAEMORRHAGE [None]
